FAERS Safety Report 24415288 (Version 1)
Quarter: 2024Q4

REPORT INFORMATION
  Report Type: Spontaneous
  Country: JP (occurrence: JP)
  Receive Date: 20241009
  Receipt Date: 20241009
  Transmission Date: 20250114
  Serious: Yes (Death, Other)
  Sender: ROCHE
  Company Number: JP-CHUGAI-2024034532

PATIENT
  Age: 9 Decade
  Sex: Female

DRUGS (1)
  1. ENSPRYNG [Suspect]
     Active Substance: SATRALIZUMAB-MWGE
     Indication: Neuromyelitis optica spectrum disorder
     Dosage: 120 MILLIGRAM, ONCE/MONTH
     Route: 058
     Dates: start: 20231018, end: 20240918

REACTIONS (4)
  - Bedridden [Unknown]
  - Feeding disorder [Unknown]
  - Decubitus ulcer [Unknown]
  - Marasmus [Fatal]

NARRATIVE: CASE EVENT DATE: 20240918
